FAERS Safety Report 6416355-2 (Version None)
Quarter: 2009Q4

REPORT INFORMATION
  Report Type: 
  Country: None (occurrence: None)
  Receive Date: 20091022
  Receipt Date: 20091009
  Transmission Date: 20100525
  Serious: Yes (Hospitalization, Other)
  Sender: FDA-Public Use
  Company Number: 1-20423911

PATIENT
  Age: 65 Year
  Sex: Female

DRUGS (5)
  1. FENTANYL-50 [Suspect]
     Dosage: 50 MCG/HR, UNK, TRANSDERMAL
     Route: 062
     Dates: start: 20061119, end: 20061122
  2. OXYCONTIN [Concomitant]
  3. PARACETAMOL [Concomitant]
  4. LEVOTHYROXINE SODIUM [Concomitant]
  5. MOVICOL (POLYETHYLENE GLYCOL 3350) [Concomitant]

REACTIONS (18)
  - AGITATION [None]
  - APPARENT DEATH [None]
  - APPLICATION SITE ERYTHEMA [None]
  - BURNING SENSATION [None]
  - CHILLS [None]
  - COLD SWEAT [None]
  - DECREASED APPETITE [None]
  - FEELING ABNORMAL [None]
  - FEELING COLD [None]
  - FOOD INTOLERANCE [None]
  - HEAT RASH [None]
  - HOT FLUSH [None]
  - INSOMNIA [None]
  - NASOPHARYNGITIS [None]
  - NAUSEA [None]
  - RASH ERYTHEMATOUS [None]
  - TREMOR [None]
  - VOMITING [None]
